FAERS Safety Report 24691626 (Version 1)
Quarter: 2024Q4

REPORT INFORMATION
  Report Type: Spontaneous
  Country: US (occurrence: None)
  Receive Date: 20241203
  Receipt Date: 20241203
  Transmission Date: 20250115
  Serious: Yes (Life-Threatening, Hospitalization)
  Sender: Public
  Company Number: None

PATIENT
  Age: 45 Year
  Sex: Male
  Weight: 125 kg

DRUGS (1)
  1. TIRZEPATIDE [Suspect]
     Active Substance: TIRZEPATIDE
     Indication: Obesity
     Dosage: OTHER FREQUENCY : QWEEK;?
     Route: 058

REACTIONS (6)
  - Diarrhoea [None]
  - Intestinal obstruction [None]
  - Eating disorder [None]
  - Insomnia [None]
  - Headache [None]
  - Night sweats [None]

NARRATIVE: CASE EVENT DATE: 20240726
